FAERS Safety Report 8486628-0 (Version None)
Quarter: 2012Q3

REPORT INFORMATION
  Report Type: 
  Country: None (occurrence: None)
  Receive Date: 20120703
  Receipt Date: 20120626
  Transmission Date: 20120928
  Serious: Yes (Hospitalization, Other)
  Sender: FDA-Public Use
  Company Number: JP-ABBOTT-12P-087-0935089-00

PATIENT
  Age: 73 Year
  Sex: Female
  Weight: 49.4 kg

DRUGS (14)
  1. RHEUMATREX [Suspect]
     Indication: PRODUCT USED FOR UNKNOWN INDICATION
     Dosage: TWICE A WEEK (4 MG, 2 MG)
     Route: 048
     Dates: start: 20090512, end: 20101005
  2. PROGRAF [Suspect]
     Indication: PRODUCT USED FOR UNKNOWN INDICATION
  3. METHOTREXATE [Concomitant]
     Indication: PRODUCT USED FOR UNKNOWN INDICATION
     Route: 048
     Dates: start: 20091006, end: 20091109
  4. METHOTREXATE [Concomitant]
     Dosage: TWICE A WEEK (10 MG, 2.5 MG)
     Route: 048
     Dates: start: 20091110, end: 20100201
  5. PREDNISOLONE [Suspect]
     Indication: PRODUCT USED FOR UNKNOWN INDICATION
     Dosage: 6 MG DAILY
     Route: 048
     Dates: start: 20090512
  6. BUCILLAMINE [Concomitant]
     Dates: start: 20090707
  7. CELECOXIB [Concomitant]
     Indication: PRODUCT USED FOR UNKNOWN INDICATION
     Route: 048
     Dates: start: 20090512
  8. METHOTREXATE [Concomitant]
     Dosage: TWICE A WEEK (7.5 MG, 2.5 MG)
     Route: 048
     Dates: start: 20100202, end: 20100322
  9. BUCILLAMINE [Concomitant]
     Indication: PRODUCT USED FOR UNKNOWN INDICATION
     Route: 048
     Dates: start: 20090512, end: 20090706
  10. SODIUM RISEDRONATE HYDRATE [Concomitant]
     Indication: PRODUCT USED FOR UNKNOWN INDICATION
     Route: 048
     Dates: start: 20090512
  11. METHOTREXATE [Concomitant]
     Route: 048
     Dates: start: 20100323
  12. HUMIRA [Suspect]
     Indication: RHEUMATOID ARTHRITIS
     Route: 058
     Dates: start: 20100608, end: 20120501
  13. LANSOPRAZOLE [Concomitant]
     Indication: PRODUCT USED FOR UNKNOWN INDICATION
     Route: 048
  14. FOLIC ACID [Concomitant]
     Indication: PRODUCT USED FOR UNKNOWN INDICATION
     Route: 048
     Dates: start: 20090512

REACTIONS (4)
  - HERPES ZOSTER [None]
  - PAIN IN EXTREMITY [None]
  - PAIN [None]
  - GRIP STRENGTH DECREASED [None]
